FAERS Safety Report 4502921-8 (Version None)
Quarter: 2004Q4

REPORT INFORMATION
  Report Type: 
  Country: None (occurrence: None)
  Receive Date: 20041116
  Receipt Date: 20041116
  Transmission Date: 20050328
  Serious: Yes (Disabling)
  Sender: FDA-Public Use
  Company Number: None

PATIENT
  Age: 54 Year
  Sex: Female
  Weight: 62.5964 kg

DRUGS (1)
  1. DEPO-MEDROL [Suspect]
     Indication: INTERVERTEBRAL DISC DEGENERATION
     Dosage: INTRATHECAL
     Route: 037
     Dates: start: 20031010, end: 20031010

REACTIONS (4)
  - ARACHNOIDITIS [None]
  - IATROGENIC INJURY [None]
  - MEDICATION ERROR [None]
  - MENINGITIS CHEMICAL [None]
